FAERS Safety Report 8020107-X (Version None)
Quarter: 2012Q1

REPORT INFORMATION
  Report Type: 
  Country: None (occurrence: None)
  Receive Date: 20120103
  Receipt Date: 20111219
  Transmission Date: 20120608
  Serious: Yes (Hospitalization)
  Sender: FDA-Public Use
  Company Number: NL-AMGEN-NLDNI2011025318

PATIENT
  Age: 36 Year
  Sex: Female

DRUGS (11)
  1. CYCLOPHOSPHAMIDE [Suspect]
     Dosage: 950 MG, UNK
     Route: 042
     Dates: start: 20101118
  2. GRANISETRON [Concomitant]
  3. CITALOPRAM [Concomitant]
     Dosage: UNK
  4. NEULASTA [Suspect]
     Dosage: 48 MG, UNK
     Route: 058
     Dates: start: 20110128
  5. TAXOTERE [Suspect]
     Dosage: 140 MG, UNK
     Route: 042
     Dates: start: 20101118
  6. ADRIAMYCIN PFS [Suspect]
     Dosage: 95 MG, UNK
     Route: 042
     Dates: start: 20101118
  7. DEXAMETHASONE [Concomitant]
  8. CALCICHEW D3 [Concomitant]
     Dosage: UNK
     Dates: start: 20101118
  9. ZOMETA [Concomitant]
     Dosage: 4.0 MG, UNK
     Route: 042
     Dates: start: 20101119
  10. ONDANSETRON [Concomitant]
  11. NEULASTA [Suspect]
     Indication: CHEMOTHERAPY
     Dosage: 6 MG, UNK
     Route: 058
     Dates: start: 20101119

REACTIONS (1)
  - PANCYTOPENIA [None]
